FAERS Safety Report 8861907 (Version 2)
Quarter: 2013Q2

REPORT INFORMATION
  Report Type: Spontaneous
  Country: US (occurrence: US)
  Receive Date: 20121025
  Receipt Date: 20130607
  Transmission Date: 20140414
  Serious: Yes (Other)
  Sender: FDA-Public Use
  Company Number: US-009507513-1210USA009938

PATIENT
  Sex: Male

DRUGS (4)
  1. DEXAMETHASONE [Suspect]
     Indication: VOMITING
     Dosage: HIGH DOSE
  2. BLEOMYCIN [Concomitant]
     Indication: CHORIOCARCINOMA
     Dosage: 0.5 UNITS/ KG, 2 UNITS, ONCE
  3. ETOPOSIDE [Concomitant]
     Indication: CHORIOCARCINOMA
     Dosage: 3 MG/KG, QD
  4. CISPLATIN [Concomitant]
     Indication: CHORIOCARCINOMA
     Dosage: 0.7 MG/ KG, QD

REACTIONS (1)
  - Adrenal insufficiency [Recovered/Resolved]
